FAERS Safety Report 8419446-X (Version None)
Quarter: 2012Q2

REPORT INFORMATION
  Report Type: 
  Country: None (occurrence: None)
  Receive Date: 20120607
  Receipt Date: 20120530
  Transmission Date: 20120825
  Serious: Yes (Other)
  Sender: FDA-Public Use
  Company Number: JP-GLAXOSMITHKLINE-B0802179A

PATIENT
  Sex: Female

DRUGS (14)
  1. LORAZEPAM [Concomitant]
     Indication: BIPOLAR DISORDER
     Route: 048
  2. ZOLPIDEM [Concomitant]
     Dosage: 1IUAX PER DAY
     Route: 048
     Dates: start: 20120425, end: 20120515
  3. LAMICTAL [Suspect]
     Indication: BIPOLAR DISORDER
     Dosage: 25MG PER DAY
     Route: 048
     Dates: start: 20120413, end: 20120501
  4. LITHIUM CARBONATE [Concomitant]
     Indication: BIPOLAR DISORDER
     Route: 048
  5. GOODMIN [Concomitant]
     Dosage: 1IUAX PER DAY
     Route: 048
     Dates: start: 20120425, end: 20120515
  6. LAMICTAL [Suspect]
     Dosage: 50MG PER DAY
     Route: 048
     Dates: start: 20120502, end: 20120516
  7. AMOBAN [Concomitant]
     Dosage: 1IUAX PER DAY
     Route: 048
     Dates: start: 20120425, end: 20120515
  8. SEROQUEL [Concomitant]
     Dosage: 1IUAX PER DAY
     Route: 048
     Dates: start: 20120425, end: 20120501
  9. BARNETIL [Concomitant]
     Dosage: 1IUAX PER DAY
     Route: 048
     Dates: start: 20120425, end: 20120501
  10. LITHIUM CARBONATE [Concomitant]
     Dosage: 3IUAX PER DAY
     Route: 048
  11. XYZAL [Concomitant]
     Dosage: 1IUAX PER DAY
     Route: 048
     Dates: start: 20120425, end: 20120515
  12. BARNETIL [Concomitant]
     Indication: BIPOLAR DISORDER
     Route: 048
  13. FLUNITRAZEPAM [Concomitant]
     Dosage: 2IUAX PER DAY
     Route: 048
     Dates: start: 20120425, end: 20120515
  14. TASMOLIN [Concomitant]
     Dosage: 2IUAX PER DAY
     Route: 048
     Dates: start: 20120425, end: 20120522

REACTIONS (2)
  - AGGRESSION [None]
  - IRRITABILITY [None]
